FAERS Safety Report 24706023 (Version 2)
Quarter: 2025Q1

REPORT INFORMATION
  Report Type: Report from Study
  Country: AT (occurrence: AT)
  Receive Date: 20241206
  Receipt Date: 20250111
  Transmission Date: 20250408
  Serious: Yes (Other)
  Sender: ABBVIE
  Company Number: AT-ABBVIE-6032124

PATIENT
  Age: 44 Year
  Sex: Female
  Weight: 63 kg

DRUGS (1)
  1. SKYRIZI [Suspect]
     Active Substance: RISANKIZUMAB-RZAA
     Indication: Crohn^s disease
     Route: 042
     Dates: start: 20241104, end: 20241203

REACTIONS (2)
  - Rectal adenocarcinoma [Not Recovered/Not Resolved]
  - Anal fistula [Unknown]

NARRATIVE: CASE EVENT DATE: 20241101
